FAERS Safety Report 8457362-8 (Version None)
Quarter: 2012Q2

REPORT INFORMATION
  Report Type: 
  Country: None (occurrence: None)
  Receive Date: 20120621
  Receipt Date: 20120608
  Transmission Date: 20120825
  Serious: No
  Sender: FDA-Public Use
  Company Number: US-ASTRAZENECA-2012SE38703

PATIENT

DRUGS (3)
  1. INSULIN [Concomitant]
  2. NEXIUM [Suspect]
     Indication: GASTROOESOPHAGEAL REFLUX DISEASE
     Route: 048
  3. NEXIUM [Suspect]
     Indication: IMPAIRED GASTRIC EMPTYING
     Route: 048

REACTIONS (2)
  - DIABETES MELLITUS [None]
  - THERAPEUTIC RESPONSE UNEXPECTED [None]
